FAERS Safety Report 20308230 (Version 1)
Quarter: 2022Q1

REPORT INFORMATION
  Report Type: Spontaneous
  Country: BE (occurrence: BE)
  Receive Date: 20220107
  Receipt Date: 20220107
  Transmission Date: 20220423
  Serious: Yes (Other)
  Sender: FDA-Public Use
  Company Number: BE-Accord-247296

PATIENT
  Age: 41 Year
  Sex: Female

DRUGS (3)
  1. MYCOPHENOLATE MOFETIL [Suspect]
     Active Substance: MYCOPHENOLATE MOFETIL
     Indication: Immunosuppression
     Dosage: TAPERED TO 750 MG/DAY IN FEB-2019, FURTHER TAPERED TO 500 MG/DAY IN JUN-2019
     Dates: start: 201611, end: 201902
  2. METHYLPREDNISOLONE [Concomitant]
     Active Substance: METHYLPREDNISOLONE
     Indication: Immunosuppression
     Dates: start: 201611
  3. TACROLIMUS [Concomitant]
     Active Substance: TACROLIMUS
     Indication: Immunosuppression
     Dates: start: 201611

REACTIONS (1)
  - Trichodysplasia spinulosa [Recovering/Resolving]

NARRATIVE: CASE EVENT DATE: 20170501
